FAERS Safety Report 5051500-5 (Version None)
Quarter: 2006Q3

REPORT INFORMATION
  Report Type: 
  Country: None (occurrence: None)
  Receive Date: 20060711
  Receipt Date: 20060627
  Transmission Date: 20061208
  Serious: Yes (Other)
  Sender: FDA-Public Use
  Company Number: 2006PV016492

PATIENT
  Age: 58 Year
  Sex: Male
  Weight: 123.3784 kg

DRUGS (3)
  1. BYETTA [Suspect]
     Indication: DIABETES MELLITUS NON-INSULIN-DEPENDENT
     Dosage: SEE IMAGE
     Route: 058
     Dates: start: 20060201, end: 20060301
  2. BYETTA [Suspect]
     Indication: DIABETES MELLITUS NON-INSULIN-DEPENDENT
     Dosage: SEE IMAGE
     Route: 058
     Dates: start: 20060301
  3. HUMALOG [Suspect]
     Indication: DIABETES MELLITUS NON-INSULIN-DEPENDENT
     Dosage: 100 BID; SC
     Route: 058

REACTIONS (6)
  - HYPOGLYCAEMIA [None]
  - LETHARGY [None]
  - LOSS OF CONSCIOUSNESS [None]
  - SLUGGISHNESS [None]
  - TREATMENT NONCOMPLIANCE [None]
  - VISION BLURRED [None]
